FAERS Safety Report 13029949 (Version 1)
Quarter: 2016Q4

REPORT INFORMATION
  Report Type: Spontaneous
  Country: US (occurrence: US)
  Receive Date: 20161215
  Receipt Date: 20161215
  Transmission Date: 20170207
  Serious: Yes (Hospitalization, Other)
  Sender: FDA-Public Use
  Company Number: None

PATIENT
  Age: 25 Year
  Sex: Female
  Weight: 65.77 kg

DRUGS (1)
  1. PARAGARD T 380A [Suspect]
     Active Substance: COPPER

REACTIONS (16)
  - Gastric disorder [None]
  - Depression [None]
  - Alopecia [None]
  - Anxiety [None]
  - Disturbance in attention [None]
  - Economic problem [None]
  - Personal relationship issue [None]
  - Crohn^s disease [None]
  - Activities of daily living impaired [None]
  - Feeling abnormal [None]
  - Vaginal ulceration [None]
  - Haemorrhoids [None]
  - Loss of employment [None]
  - Fatigue [None]
  - Toxicity to various agents [None]
  - Emotional distress [None]

NARRATIVE: CASE EVENT DATE: 20140401
